FAERS Safety Report 7911916-3 (Version None)
Quarter: 2011Q4

REPORT INFORMATION
  Report Type: 
  Country: None (occurrence: None)
  Receive Date: 20111102
  Receipt Date: 20100928
  Transmission Date: 20120403
  Serious: Yes (Other)
  Sender: FDA-Public Use
  Company Number: AUR-APL-2010-02427

PATIENT
  Age: 82 Year
  Sex: Female
  Weight: 92.9874 kg

DRUGS (6)
  1. WARFARIN SODIUM [Concomitant]
  2. METOPROLOL TARTRATE [Suspect]
     Indication: HEART RATE INCREASED
     Dosage: 25 MG - DAILY - ORAL
     Route: 048
     Dates: start: 20100801
  3. TIKOSYN [Suspect]
     Indication: HEART RATE INCREASED
     Dosage: 1 CAPSULE - BID - ORAL
     Route: 048
     Dates: start: 20100809
  4. SYNTHROID [Concomitant]
  5. VITAMIN TAB [Concomitant]
  6. SOTALOL HCL [Suspect]
     Indication: HEART RATE INCREASED
     Dosage: 160 MG - BID - ORAL
     Route: 048

REACTIONS (2)
  - HEART RATE INCREASED [None]
  - DRUG INEFFECTIVE [None]
